FAERS Safety Report 15614331 (Version 2)
Quarter: 2019Q1

REPORT INFORMATION
  Report Type: Report from Study
  Country: US (occurrence: US)
  Receive Date: 20181113
  Receipt Date: 20190201
  Transmission Date: 20190417
  Serious: Yes (Hospitalization)
  Sender: FDA-Public Use
  Company Number: US-ACTELION-A-NJ2018-170716

PATIENT
  Age: 63 Year
  Sex: Female
  Weight: 105.21 kg

DRUGS (2)
  1. OPSUMIT [Suspect]
     Active Substance: MACITENTAN
     Indication: PULMONARY HYPERTENSION
     Dosage: 10 MG, QD
     Route: 048
     Dates: start: 201803
  2. SILDENAFIL CITRATE. [Concomitant]
     Active Substance: SILDENAFIL CITRATE
     Dosage: UNK

REACTIONS (15)
  - Aortic valve repair [Unknown]
  - Constipation [Unknown]
  - Head injury [Unknown]
  - Syncope [Unknown]
  - Joint injury [Unknown]
  - Renal failure [Unknown]
  - Fluid retention [Unknown]
  - Nasal congestion [Unknown]
  - Dyspnoea [Unknown]
  - Mitral valve repair [Unknown]
  - Swelling face [Unknown]
  - Surgery [Unknown]
  - Dialysis [Unknown]
  - Headache [Unknown]
  - Presyncope [Unknown]

NARRATIVE: CASE EVENT DATE: 20180823
